FAERS Safety Report 6728759-9 (Version None)
Quarter: 2010Q2

REPORT INFORMATION
  Report Type: 
  Country: None (occurrence: None)
  Receive Date: 20100517
  Receipt Date: 20100216
  Transmission Date: 20101027
  Serious: No
  Sender: FDA-Public Use
  Company Number: US-ABBOTT-10P-163-0626555-00

PATIENT
  Sex: Female
  Weight: 74.91 kg

DRUGS (6)
  1. SIMCOR [Suspect]
     Indication: HIGH DENSITY LIPOPROTEIN DECREASED
     Dosage: 500/20
     Dates: start: 20100204
  2. SIMCOR [Suspect]
     Indication: LOW DENSITY LIPOPROTEIN INCREASED
  3. PAXIL [Concomitant]
     Indication: PANIC ATTACK
  4. LEVOTHYROXINE SODIUM [Concomitant]
     Indication: HYPOTHYROIDISM
  5. PROPRANOLOL [Concomitant]
     Indication: MITRAL VALVE DISEASE
  6. ALPRAZOLAM [Concomitant]
     Indication: ANXIOLYTIC THERAPY

REACTIONS (5)
  - CARDIAC FLUTTER [None]
  - DYSPNOEA [None]
  - HEADACHE [None]
  - PALPITATIONS [None]
  - SLEEP DISORDER [None]
